FAERS Safety Report 4796065-8 (Version None)
Quarter: 2005Q4

REPORT INFORMATION
  Report Type: 
  Country: None (occurrence: None)
  Receive Date: 20051007
  Receipt Date: 20050926
  Transmission Date: 20060501
  Serious: No
  Sender: FDA-Public Use
  Company Number: 218071

PATIENT
  Age: 65 Year
  Sex: Female
  Weight: 88.4 kg

DRUGS (4)
  1. RITUXAN [Suspect]
     Indication: NON-HODGKIN'S LYMPHOMA
     Dosage: UNKNOWN
     Route: 065
     Dates: start: 20050301, end: 20050502
  2. RITUXAN [Suspect]
     Indication: NON-HODGKIN'S LYMPHOMA
     Dosage: UNKNOWN
     Route: 065
     Dates: start: 20050329, end: 20050502
  3. CYTOXAN [Concomitant]
  4. UNSPECIFIED CONCOMITANT DRUGS (GENERIC COMPONENT (S) NOT KNOWN) [Concomitant]

REACTIONS (1)
  - BRONCHIECTASIS [None]
